FAERS Safety Report 20002046 (Version 1)
Quarter: 2021Q4

REPORT INFORMATION
  Report Type: Report from Study
  Country: CN (occurrence: CN)
  Receive Date: 20211027
  Receipt Date: 20211027
  Transmission Date: 20220303
  Serious: Yes (Congenital Anomaly, Other)
  Sender: FDA-Public Use
  Company Number: CN-UCBSA-2021050821

PATIENT

DRUGS (1)
  1. LEVETIRACETAM [Suspect]
     Active Substance: LEVETIRACETAM
     Indication: Seizure
     Dosage: 10 MG/KG, 2 TIMES A DAY
     Route: 064

REACTIONS (5)
  - Premature baby [Unknown]
  - Foetal distress syndrome [Unknown]
  - Body mass index decreased [Unknown]
  - Neonatal deformity [Unknown]
  - Maternal exposure during pregnancy [Unknown]
